FAERS Safety Report 12408070 (Version 3)
Quarter: 2016Q3

REPORT INFORMATION
  Report Type: Report from Study
  Country: US (occurrence: US)
  Receive Date: 20160526
  Receipt Date: 20160809
  Transmission Date: 20161109
  Serious: Yes (Hospitalization, Other)
  Sender: FDA-Public Use
  Company Number: US-AMGEN-USASL2016066167

PATIENT
  Age: 64 Year
  Sex: Female

DRUGS (3)
  1. ENBREL [Suspect]
     Active Substance: ETANERCEPT
     Indication: PSORIASIS
     Dosage: 50 MG, 2 TIMES/WK
     Route: 065
  2. ENBREL [Suspect]
     Active Substance: ETANERCEPT
     Dosage: 25 MG, 2 TIMES/WK
     Route: 065
     Dates: start: 20160416
  3. ENBREL [Suspect]
     Active Substance: ETANERCEPT
     Indication: PSORIATIC ARTHROPATHY
     Dosage: 25 MG, 2 TIMES/WK
     Route: 065
     Dates: start: 2004

REACTIONS (33)
  - Bladder operation [Unknown]
  - Dysphonia [Unknown]
  - Drug dose omission [Unknown]
  - Psoriasis [Unknown]
  - Systemic lupus erythematosus [Unknown]
  - Cholelithiasis [Unknown]
  - Myopathy [Unknown]
  - Cholecystitis infective [Unknown]
  - Hypersensitivity [Unknown]
  - Sinusitis [Unknown]
  - Mobility decreased [Unknown]
  - Procedural pain [Unknown]
  - Skin disorder [Unknown]
  - Lymphadenopathy [Unknown]
  - Dry mouth [Unknown]
  - Incorrect product storage [Unknown]
  - Mixed connective tissue disease [Unknown]
  - Post procedural complication [Unknown]
  - Joint arthroplasty [Unknown]
  - Chest pain [Unknown]
  - Hair texture abnormal [Unknown]
  - Asthenia [Unknown]
  - Injection site bruising [Unknown]
  - Fall [Unknown]
  - Pain [Unknown]
  - Cataract operation [Unknown]
  - Attention deficit/hyperactivity disorder [Unknown]
  - Viral pericarditis [Unknown]
  - Knee operation [Unknown]
  - Unevaluable event [Unknown]
  - Injection site pain [Unknown]
  - Road traffic accident [Unknown]
  - Gingival swelling [Unknown]

NARRATIVE: CASE EVENT DATE: 2005
